FAERS Safety Report 14147294 (Version 1)
Quarter: 2017Q4

REPORT INFORMATION
  Report Type: Spontaneous
  Country: BR (occurrence: BR)
  Receive Date: 20171031
  Receipt Date: 20171031
  Transmission Date: 20180321
  Serious: Yes (Hospitalization)
  Sender: FDA-Public Use
  Company Number: BR-009507513-1710BRA014913

PATIENT
  Age: 65 Year
  Sex: Female
  Weight: 83 kg

DRUGS (1)
  1. NASONEX [Suspect]
     Active Substance: MOMETASONE FUROATE
     Indication: RHINITIS ALLERGIC
     Dosage: 1 PUFF ON EACH NOSTRIL EVERY 12 HOURS. (USED THE SUSPECT DRUG ONLY FOR TWICE)
     Route: 045
     Dates: start: 201707, end: 201707

REACTIONS (3)
  - Inappropriate schedule of drug administration [Unknown]
  - Aortic aneurysm [Unknown]
  - Blister [Unknown]

NARRATIVE: CASE EVENT DATE: 201707
